FAERS Safety Report 5096022-0 (Version None)
Quarter: 2006Q3

REPORT INFORMATION
  Report Type: 
  Country: None (occurrence: None)
  Receive Date: 20060905
  Receipt Date: 20060829
  Transmission Date: 20061208
  Serious: Yes (Hospitalization)
  Sender: FDA-Public Use
  Company Number: FR-GLAXOSMITHKLINE-B0436836A

PATIENT
  Age: 34 Year
  Sex: Male

DRUGS (3)
  1. PAROXETINE HCL [Suspect]
     Indication: MAJOR DEPRESSION
     Dosage: 20MG PER DAY
     Route: 048
     Dates: start: 20050401, end: 20050802
  2. CLONAZEPAM [Concomitant]
     Indication: ANXIETY
     Route: 065
     Dates: start: 20050727
  3. ALPRAZOLAM [Concomitant]
     Indication: ANXIETY

REACTIONS (10)
  - AGGRESSION [None]
  - ANGER [None]
  - ANXIETY [None]
  - DELIRIUM [None]
  - DELUSIONAL DISORDER, JEALOUS TYPE [None]
  - DELUSIONAL DISORDER, PERSECUTORY TYPE [None]
  - HALLUCINATION, AUDITORY [None]
  - IRRITABILITY [None]
  - SCHIZOAFFECTIVE DISORDER [None]
  - SPEECH DISORDER [None]
